FAERS Safety Report 8271315-4 (Version None)
Quarter: 2012Q2

REPORT INFORMATION
  Report Type: 
  Country: None (occurrence: None)
  Receive Date: 20120410
  Receipt Date: 20120328
  Transmission Date: 20120825
  Serious: Yes (Other)
  Sender: FDA-Public Use
  Company Number: GB-US-EMD SERONO, INC.-7068177

PATIENT
  Sex: Female

DRUGS (2)
  1. SAIZEN [Suspect]
     Route: 058
  2. SAIZEN [Suspect]
     Indication: GROWTH HORMONE DEFICIENCY
     Route: 058
     Dates: start: 20110501, end: 20110630

REACTIONS (3)
  - FLUID RETENTION [None]
  - PETIT MAL EPILEPSY [None]
  - OEDEMA PERIPHERAL [None]
